FAERS Safety Report 24871200 (Version 1)
Quarter: 2025Q1

REPORT INFORMATION
  Report Type: Spontaneous
  Country: US (occurrence: US)
  Receive Date: 20250122
  Receipt Date: 20250122
  Transmission Date: 20250409
  Serious: Yes (Hospitalization, Other)
  Sender: AVYXA HOLDINGS, LLC
  Company Number: US-AVYXA HOLDINGS, LLC-2025AVY000008

PATIENT
  Age: 47 Year
  Sex: Male

DRUGS (3)
  1. PEMETREXED [Suspect]
     Active Substance: PEMETREXED
     Indication: Non-small cell lung cancer metastatic
     Route: 065
  2. Loratinib [Concomitant]
     Indication: Non-small cell lung cancer metastatic
     Route: 065
  3. ENOXAPARIN SODIUM [Concomitant]
     Active Substance: ENOXAPARIN SODIUM
     Indication: Product used for unknown indication
     Route: 065

REACTIONS (1)
  - Pseudocellulitis [Recovering/Resolving]
